FAERS Safety Report 20092152 (Version 2)
Quarter: 2021Q4

REPORT INFORMATION
  Report Type: Spontaneous
  Country: AT (occurrence: AT)
  Receive Date: 20211119
  Receipt Date: 20211129
  Transmission Date: 20220303
  Serious: Yes (Other)
  Sender: FDA-Public Use
  Company Number: AT-002147023-NVSC2021AT203222

PATIENT
  Sex: Female

DRUGS (6)
  1. LETROZOLE [Suspect]
     Active Substance: LETROZOLE
     Indication: Breast cancer
     Dosage: UNK
     Route: 065
     Dates: start: 201905, end: 202108
  2. LETROZOLE [Suspect]
     Active Substance: LETROZOLE
     Dosage: 2.5 MILLIGRAM
     Route: 065
  3. ZOLADEX                            /00732101/ [Concomitant]
     Indication: Product used for unknown indication
     Dosage: UNK
     Route: 065
     Dates: start: 201905, end: 202108
  4. FULVESTRANT [Concomitant]
     Active Substance: FULVESTRANT
     Indication: Product used for unknown indication
     Dosage: UNK
     Route: 065
  5. DENOSUMAB [Concomitant]
     Active Substance: DENOSUMAB
     Indication: Product used for unknown indication
     Dosage: UNK, Q4W
     Route: 065
     Dates: start: 20190820
  6. ALPELISIB [Concomitant]
     Active Substance: ALPELISIB
     Indication: Product used for unknown indication
     Dosage: UNK

REACTIONS (3)
  - Malignant neoplasm progression [Unknown]
  - Breast cancer [Unknown]
  - Metastases to liver [Unknown]

NARRATIVE: CASE EVENT DATE: 20210801
